FAERS Safety Report 18619861 (Version 2)
Quarter: 2020Q4

REPORT INFORMATION
  Report Type: Spontaneous
  Country: JP (occurrence: JP)
  Receive Date: 20201215
  Receipt Date: 20201222
  Transmission Date: 20210114
  Serious: Yes (Death, Other)
  Sender: FDA-Public Use
  Company Number: JP-PFIZER INC-2020487227

PATIENT
  Age: 56 Year
  Sex: Male

DRUGS (9)
  1. METHOTREXATE. [Suspect]
     Active Substance: METHOTREXATE
     Indication: MANTLE CELL LYMPHOMA
     Dosage: UNK, CYCLIC
     Dates: start: 201910, end: 202002
  2. DOXORUBICIN HCL [Suspect]
     Active Substance: DOXORUBICIN HYDROCHLORIDE
     Indication: MANTLE CELL LYMPHOMA
     Dosage: UNK, CYCLIC
     Dates: start: 201910, end: 202002
  3. CYCLOPHOSPHAMIDE. [Suspect]
     Active Substance: CYCLOPHOSPHAMIDE
     Indication: MANTLE CELL LYMPHOMA
     Dosage: UNK, CYCLIC
     Dates: start: 201910, end: 202002
  4. VINCRISTINE SULFATE. [Suspect]
     Active Substance: VINCRISTINE SULFATE
     Indication: MANTLE CELL LYMPHOMA
     Dosage: UNK, CYCLIC
     Dates: start: 201910, end: 202002
  5. CYTARABINE. [Suspect]
     Active Substance: CYTARABINE
     Indication: MANTLE CELL LYMPHOMA
     Dosage: UNK, CYCLIC
     Dates: start: 201910, end: 202002
  6. RITUXIMAB. [Suspect]
     Active Substance: RITUXIMAB
     Indication: MANTLE CELL LYMPHOMA
     Dosage: UNK, CYCLIC
     Dates: start: 201910, end: 202002
  7. RITUXIMAB. [Suspect]
     Active Substance: RITUXIMAB
     Dosage: UNK
     Dates: start: 20200310
  8. DEXAMETHASONE. [Suspect]
     Active Substance: DEXAMETHASONE
     Indication: MANTLE CELL LYMPHOMA
     Dosage: UNK, CYCLIC
     Dates: start: 201910, end: 202002
  9. BENDAMUSTINE [Suspect]
     Active Substance: BENDAMUSTINE
     Indication: MANTLE CELL LYMPHOMA
     Dosage: UNK, CYCLIC
     Dates: start: 20200310

REACTIONS (3)
  - Myelosuppression [Unknown]
  - Immunodeficiency [Unknown]
  - COVID-19 [Fatal]
